FAERS Safety Report 8772060 (Version 1)
Quarter: 2012Q4

REPORT INFORMATION
  Report Type: 
  Country: EC (occurrence: EC)
  Receive Date: 20120905
  Receipt Date: 20120905
  Transmission Date: 20130627
  Serious: Yes (Death)
  Sender: FDA-Public Use
  Company Number: EC-BAXTER-2012BAX015621

PATIENT
  Age: 61 Year
  Sex: Male
  Weight: 40.5 kg

DRUGS (10)
  1. DIANEAL PD-2 CON DEXTROSA AL 1.5% SOLUCION PARA DIALISIS PERITONEAL [Suspect]
     Indication: RENAL FAILURE CHRONIC
     Dosage: 1 Bag per night
     Route: 033
     Dates: start: 20100430, end: 20120821
  2. DIANEAL PD-2 CON DEXTROSA AL 2.5% SOLUCION PARA DIALISIS PERITONEAL [Suspect]
     Indication: RENAL FAILURE CHRONIC
     Dosage: 1 Bag per night
     Route: 033
     Dates: start: 20100430, end: 20120821
  3. CALCIUM CARBONATE [Concomitant]
     Indication: DRUG USE FOR UNKNOWN INDICATION
     Route: 048
  4. B COMPLEX [Concomitant]
     Indication: DRUG USE FOR UNKNOWN INDICATION
     Route: 048
  5. FOLIC ACID [Concomitant]
     Indication: DRUG USE FOR UNKNOWN INDICATION
     Route: 048
  6. VITAMIN C [Concomitant]
     Indication: DRUG USE FOR UNKNOWN INDICATION
     Route: 048
  7. FUROSEMIDE [Concomitant]
     Indication: DRUG USE FOR UNKNOWN INDICATION
     Route: 048
  8. ERYTHROPOIETIN [Concomitant]
     Indication: DRUG USE FOR UNKNOWN INDICATION
     Route: 058
  9. HEPARIN [Concomitant]
     Indication: DRUG USE FOR UNKNOWN INDICATION
     Dosage: WITH EVERY DIANEAL BAG
     Route: 033
  10. DIAZEPAM [Concomitant]
     Indication: DRUG USE FOR UNKNOWN INDICATION
     Route: 048

REACTIONS (1)
  - Death [Fatal]
